FAERS Safety Report 21397811 (Version 1)
Quarter: 2022Q3

REPORT INFORMATION
  Report Type: Spontaneous
  Country: BR (occurrence: BR)
  Receive Date: 20220930
  Receipt Date: 20220930
  Transmission Date: 20221027
  Serious: Yes (Other)
  Sender: FDA-Public Use
  Company Number: BR-BAXTER-2022BAX020786

PATIENT
  Age: 44 Year
  Sex: Female

DRUGS (3)
  1. IRON [Suspect]
     Active Substance: IRON
     Dosage: 2 AMPULES DILUTED IN 250 ML OF 0.9% SODIUM CHLORIDE IN ONE HOUR AS A SINGLE DOSE
     Route: 042
     Dates: start: 20220920, end: 20220920
  2. SODIUM CHLORIDE [Suspect]
     Active Substance: SODIUM CHLORIDE
     Indication: Medication dilution
     Dosage: 2 AMPULES DILUTED IN 250 ML OF 0.9% SODIUM CHLORIDE IN ONE HOUR AS A SINGLE DOSE
     Route: 042
     Dates: start: 20220920, end: 20220920
  3. CYANOCOBALAMIN\PYRIDOXINE HYDROCHLORIDE\THIAMINE [Concomitant]
     Active Substance: CYANOCOBALAMIN\PYRIDOXINE HYDROCHLORIDE\THIAMINE
     Route: 065

REACTIONS (8)
  - Face oedema [Recovered/Resolved]
  - Cyanosis [Recovered/Resolved]
  - Abdominal pain [Recovered/Resolved]
  - Diarrhoea [Recovered/Resolved]
  - Hyperhidrosis [Recovered/Resolved]
  - Vomiting [Recovered/Resolved]
  - Nausea [Recovered/Resolved]
  - Product administration error [Unknown]

NARRATIVE: CASE EVENT DATE: 20220920
